FAERS Safety Report 7481887-5 (Version None)
Quarter: 2011Q2

REPORT INFORMATION
  Report Type: 
  Country: None (occurrence: None)
  Receive Date: 20110506
  Receipt Date: 20110422
  Transmission Date: 20111010
  Serious: Yes (Other)
  Sender: FDA-Public Use
  Company Number: 031545

PATIENT
  Sex: Female
  Weight: 65.7716 kg

DRUGS (7)
  1. ZYRTEC [Concomitant]
  2. CIMZIA [Suspect]
     Indication: CROHN'S DISEASE
     Dosage: SUBCUTANEOUS, 400 MG 1X/MONTH SUBCUTANEOUS
     Route: 058
     Dates: start: 20110113, end: 20110101
  3. CIMZIA [Suspect]
     Indication: CROHN'S DISEASE
     Dosage: SUBCUTANEOUS, 400 MG 1X/MONTH SUBCUTANEOUS
     Route: 058
     Dates: start: 20110310
  4. BACTROBAN [Concomitant]
  5. MACROBID [Concomitant]
  6. ALBUTEROL SULFATE AUTOHALER [Concomitant]
  7. CLOBETASOL PROPIONATE [Concomitant]

REACTIONS (1)
  - HERPES ZOSTER [None]
